FAERS Safety Report 9079400 (Version 1)
Quarter: 2013Q1

REPORT INFORMATION
  Report Type: Report from Study
  Country: GR (occurrence: GR)
  Receive Date: 20130215
  Receipt Date: 20130215
  Transmission Date: 20140127
  Serious: Yes (Death)
  Sender: FDA-Public Use
  Company Number: GR-PFIZER INC-2013053735

PATIENT
  Sex: 0

DRUGS (4)
  1. CYTARABINE [Suspect]
     Dosage: UNK
  2. ETOPOSIDE [Suspect]
     Dosage: 800 MG/M2, UNK
  3. BICNU [Suspect]
     Dosage: UNK
  4. MELPHALAN [Suspect]
     Dosage: 140 MG/M2, UNK

REACTIONS (1)
  - Death [Fatal]
